FAERS Safety Report 8999869 (Version 1)
Quarter: 2013Q1

REPORT INFORMATION
  Report Type: Report from Study
  Country: CA (occurrence: CA)
  Receive Date: 20130102
  Receipt Date: 20130102
  Transmission Date: 20140127
  Serious: Yes (Hospitalization)
  Sender: FDA-Public Use
  Company Number: CA-JNJFOC-20121213462

PATIENT
  Sex: Female
  Weight: 54.6 kg

DRUGS (9)
  1. REMICADE [Suspect]
     Indication: SCLEROMALACIA
     Route: 042
     Dates: start: 20120105
  2. PLAQUENIL [Concomitant]
     Route: 065
  3. REPLAVITE [Concomitant]
     Route: 065
  4. PREDNISONE [Concomitant]
     Route: 065
  5. VITAMIN D [Concomitant]
     Route: 065
  6. URSODEOXYCHOLIC ACID [Concomitant]
     Route: 065
  7. RENAGEL [Concomitant]
     Route: 065
  8. ARANESP [Concomitant]
     Route: 065
  9. CALCIUM [Concomitant]
     Route: 065

REACTIONS (1)
  - Cerebrovascular accident [Unknown]
